APPROVED DRUG PRODUCT: LIDOCAINE
Active Ingredient: LIDOCAINE
Strength: 5%
Dosage Form/Route: OINTMENT;TOPICAL
Application: A210256 | Product #001
Applicant: TEVA PHARMACEUTICALS USA INC
Approved: Jan 16, 2018 | RLD: No | RS: No | Type: DISCN